FAERS Safety Report 8949403 (Version 2)
Quarter: 2013Q1

REPORT INFORMATION
  Report Type: Spontaneous
  Country: ES (occurrence: ES)
  Receive Date: 20121206
  Receipt Date: 20130212
  Transmission Date: 20140127
  Serious: Yes (Other)
  Sender: FDA-Public Use
  Company Number: ES-ELI_LILLY_AND_COMPANY-ES201211007278

PATIENT
  Age: 34 Year
  Sex: Female

DRUGS (7)
  1. ZYPADHERA [Suspect]
     Indication: SCHIZOPHRENIA
     Dosage: 300 MG, 2/M
     Dates: start: 20120712, end: 20121119
  2. DULOXETINE HYDROCHLORIDE [Suspect]
     Indication: DEPRESSION
     Dosage: 60 MG, BID
     Route: 048
     Dates: start: 201205
  3. ZYPREXA VELOTAB [Suspect]
     Indication: SCHIZOPHRENIA
     Dosage: 10 MG, QD
     Route: 048
     Dates: start: 201205, end: 20121114
  4. RIVOTRIL [Concomitant]
     Indication: ANXIETY
     Dosage: 1.5 MG, QD
     Route: 048
     Dates: start: 201205
  5. SOLIAN [Concomitant]
     Indication: SCHIZOPHRENIA
     Dosage: 800 MG, QD
     Route: 048
     Dates: start: 201209
  6. AKINETON                                /AUS/ [Concomitant]
     Dosage: 2 MG, UNK
  7. ABILIFY [Concomitant]
     Dosage: 30 MG, QD
     Dates: start: 201205, end: 201209

REACTIONS (5)
  - Sedation [Recovered/Resolved]
  - Hypotension [Recovered/Resolved]
  - Hypokinesia [Recovered/Resolved]
  - Prescribed overdose [Unknown]
  - QRS axis abnormal [Unknown]
